FAERS Safety Report 9571312 (Version 1)
Quarter: 2013Q4

REPORT INFORMATION
  Report Type: Report from Study
  Country: AR (occurrence: AR)
  Receive Date: 20131001
  Receipt Date: 20131001
  Transmission Date: 20140711
  Serious: Yes (Hospitalization)
  Sender: FDA-Public Use
  Company Number: AR-ROCHE-1282306

PATIENT
  Sex: Male

DRUGS (2)
  1. RANIBIZUMAB [Suspect]
     Indication: MACULOPATHY
     Route: 050
     Dates: start: 2011
  2. RANIBIZUMAB [Suspect]
     Route: 050
     Dates: start: 2012

REACTIONS (2)
  - Spinal cord disorder [Not Recovered/Not Resolved]
  - Spleen disorder [Not Recovered/Not Resolved]
